FAERS Safety Report 5483742-9 (Version None)
Quarter: 2007Q4

REPORT INFORMATION
  Report Type: 
  Country: None (occurrence: None)
  Receive Date: 20071009
  Receipt Date: 20071009
  Transmission Date: 20080405
  Serious: Yes (Death)
  Sender: FDA-Public Use
  Company Number: None

PATIENT
  Sex: Male
  Weight: 68.1 kg

DRUGS (11)
  1. FLUDARABINE PHOSPHATE [Suspect]
     Indication: MYELOPROLIFERATIVE DISORDER
     Dosage: 70 MG DAILY FOR 5 DAYS IV
     Route: 042
     Dates: start: 20070628, end: 20070702
  2. CYCLOPHOSPHAMIDE [Suspect]
     Indication: MYELOPROLIFERATIVE DISORDER
     Dosage: 2G DAILY FOR 2 DAYS IV
     Route: 042
     Dates: start: 20070703, end: 20070704
  3. MYCOFUNGIN [Concomitant]
  4. ZOSYN [Concomitant]
  5. VANCOMYCIN [Concomitant]
  6. URSODIAL [Concomitant]
  7. DESONIDE CREAM [Concomitant]
  8. BUDESONIDE [Concomitant]
  9. METHOXALON [Concomitant]
  10. TRIAMINCOLONE [Concomitant]
  11. PUVA [Concomitant]

REACTIONS (6)
  - ACUTE GRAFT VERSUS HOST DISEASE IN INTESTINE [None]
  - COMPLICATIONS OF TRANSPLANT SURGERY [None]
  - GRAFT VERSUS HOST DISEASE [None]
  - MYELOPROLIFERATIVE DISORDER [None]
  - NEOPLASM RECURRENCE [None]
  - STEM CELL TRANSPLANT [None]
